FAERS Safety Report 6366801-8 (Version None)
Quarter: 2009Q3

REPORT INFORMATION
  Report Type: 
  Country: None (occurrence: None)
  Receive Date: 20090921
  Receipt Date: 20090910
  Transmission Date: 20100115
  Serious: Yes (Other)
  Sender: FDA-Public Use
  Company Number: CH-WATSON-2009-07473

PATIENT
  Age: 31 Year
  Sex: Female

DRUGS (1)
  1. PROGESTERONE IN OIL INJ [Suspect]
     Indication: IMMINENT ABORTION
     Dosage: 200 MG, DAILY
     Route: 048

REACTIONS (1)
  - SIDEROBLASTIC ANAEMIA [None]
